FAERS Safety Report 7119109-7 (Version None)
Quarter: 2010Q4

REPORT INFORMATION
  Report Type: 
  Country: None (occurrence: None)
  Receive Date: 20101123
  Receipt Date: 20101116
  Transmission Date: 20110411
  Serious: Yes (Hospitalization)
  Sender: FDA-Public Use
  Company Number: US-US-EMD SERONO, INC.-7020440

PATIENT
  Sex: Female

DRUGS (3)
  1. REBIF [Suspect]
     Indication: PRODUCT USED FOR UNKNOWN INDICATION
     Route: 058
     Dates: start: 20091112
  2. REBIF [Suspect]
     Route: 058
  3. UNSPECIFIED SEIZURE MEDICATION [Concomitant]
     Indication: CONVULSION
     Dates: end: 20100901

REACTIONS (2)
  - CONVULSION [None]
  - MUSCULAR WEAKNESS [None]
